FAERS Safety Report 8808378 (Version 1)
Quarter: 2012Q4

REPORT INFORMATION
  Report Type: Spontaneous
  Country: US (occurrence: None)
  Receive Date: 20120920
  Receipt Date: 20120920
  Transmission Date: 20130627
  Serious: Yes (Hospitalization)
  Sender: FDA-Public Use
  Company Number: ACO_31879_2012

PATIENT
  Age: 54 Year
  Sex: Female

DRUGS (6)
  1. AMPYRA [Suspect]
     Indication: GAIT DISTURBANCE
     Dates: start: 20120814, end: 20120814
  2. INSULIN (INSULIN) [Concomitant]
  3. CITALOPRAM (CITALOPRAM HYDROBROMIDE) [Concomitant]
  4. ALL OTHER THERAPEUTIC PRODUCTS [Concomitant]
  5. VITAMIN D (ERGOCALCIFEROL) [Concomitant]
  6. LIPID MODIFYING AGENTS [Concomitant]

REACTIONS (6)
  - Tremor [None]
  - Speech disorder [None]
  - Gait disturbance [None]
  - Malaise [None]
  - Headache [None]
  - Dizziness [None]
